FAERS Safety Report 12552928 (Version 3)
Quarter: 2017Q2

REPORT INFORMATION
  Report Type: Report from Study
  Country: JP (occurrence: JP)
  Receive Date: 20160713
  Receipt Date: 20170626
  Transmission Date: 20170830
  Serious: Yes (Hospitalization)
  Sender: FDA-Public Use
  Company Number: JP-HORIZON-BUP-0072-2016

PATIENT
  Age: 19 Year
  Sex: Male
  Weight: 53.3 kg

DRUGS (4)
  1. MENATETRENONE [Concomitant]
     Active Substance: MENATETRENONE
     Indication: HEPAPLASTIN DECREASED
     Route: 048
  2. ARGI-U [Concomitant]
     Dosage: 4 G/D - 19-APR-2016, 6 G/D 20-APR - 27-MAY, 4 G/D 28-MAY - 26-AUG, 12 G/D 08-OCT - 16-JAN-2017
     Route: 048
  3. BUPHENYL [Suspect]
     Active Substance: SODIUM PHENYLBUTYRATE
     Indication: ORNITHINE TRANSCARBAMOYLASE DEFICIENCY
     Dosage: 8 G DAILY
     Dates: start: 20160418, end: 20160423
  4. BUPHENYL [Suspect]
     Active Substance: SODIUM PHENYLBUTYRATE
     Indication: ORNITHINE TRANSCARBAMOYLASE DEFICIENCY
     Dosage: 16 DF/D UNTIL 26-AUG-2016, INCREASED TO 24 DF/D ON 08-OCT-2016
     Dates: start: 20160424

REACTIONS (1)
  - Hyperammonaemia [Recovered/Resolved]

NARRATIVE: CASE EVENT DATE: 20160612
